FAERS Safety Report 5868334-1 (Version None)
Quarter: 2008Q3

REPORT INFORMATION
  Report Type: 
  Country: None (occurrence: None)
  Receive Date: 20080903
  Receipt Date: 20080829
  Transmission Date: 20090109
  Serious: Yes (Hospitalization)
  Sender: FDA-Public Use
  Company Number: FR-BRISTOL-MYERS SQUIBB COMPANY-14321723

PATIENT
  Age: 34 Year
  Sex: Female

DRUGS (5)
  1. CORGARD [Suspect]
     Route: 048
  2. ATACAND [Interacting]
     Route: 048
     Dates: end: 20080514
  3. PLAVIX [Concomitant]
     Route: 048
  4. ALDACTONE [Concomitant]
     Route: 065
  5. PRAVADUAL [Concomitant]
     Route: 065

REACTIONS (4)
  - DRUG INTERACTION [None]
  - HYPOTENSION [None]
  - LOSS OF CONSCIOUSNESS [None]
  - MALAISE [None]
